FAERS Safety Report 10009890 (Version 2)
Quarter: 2014Q1

REPORT INFORMATION
  Report Type: Spontaneous
  Country: US (occurrence: US)
  Receive Date: 20140312
  Receipt Date: 20140312
  Transmission Date: 20141002
  Serious: No
  Sender: FDA-Public Use
  Company Number: US-INCYTE CORPORATION-2013IN000154

PATIENT
  Age: 46 Year
  Sex: Female

DRUGS (2)
  1. JAKAFI [Suspect]
     Indication: MYELOFIBROSIS
     Dosage: 20 MG, BID
     Route: 048
     Dates: start: 20121119, end: 20130228
  2. AMOXICILLIN [Concomitant]
     Dosage: 850 MG, BID

REACTIONS (7)
  - Nasopharyngitis [Unknown]
  - Pharyngitis streptococcal [Unknown]
  - Asthenia [Unknown]
  - Pain [Unknown]
  - Feeling abnormal [Unknown]
  - Headache [Unknown]
  - Anaemia [Unknown]
